FAERS Safety Report 23499336 (Version 2)
Quarter: 2024Q1

REPORT INFORMATION
  Report Type: Spontaneous
  Country: FR (occurrence: None)
  Receive Date: 20240208
  Receipt Date: 20240227
  Transmission Date: 20240409
  Serious: Yes (Disabling)
  Sender: FDA-Public Use
  Company Number: FR-ROCHE-3502352

PATIENT
  Age: 86 Year
  Sex: Male

DRUGS (11)
  1. VABYSMO [Suspect]
     Active Substance: FARICIMAB\FARICIMAB-SVOA
     Indication: Neovascular age-related macular degeneration
     Route: 050
     Dates: start: 20240103, end: 20240103
  2. EYLEA [Suspect]
     Active Substance: AFLIBERCEPT
     Indication: Neovascular age-related macular degeneration
     Route: 050
     Dates: end: 202303
  3. EYLEA [Suspect]
     Active Substance: AFLIBERCEPT
     Route: 050
     Dates: end: 202305
  4. EYLEA [Suspect]
     Active Substance: AFLIBERCEPT
     Route: 050
     Dates: end: 202307
  5. EYLEA [Suspect]
     Active Substance: AFLIBERCEPT
     Route: 050
     Dates: end: 202309
  6. EYLEA [Suspect]
     Active Substance: AFLIBERCEPT
     Route: 050
  7. EYLEA [Suspect]
     Active Substance: AFLIBERCEPT
     Route: 050
     Dates: start: 20230913
  8. EYLEA [Suspect]
     Active Substance: AFLIBERCEPT
     Route: 050
     Dates: start: 20231010
  9. EYLEA [Suspect]
     Active Substance: AFLIBERCEPT
     Route: 050
     Dates: start: 20231109
  10. EYLEA [Suspect]
     Active Substance: AFLIBERCEPT
     Route: 050
     Dates: start: 20231204
  11. LUCENTIS [Concomitant]
     Active Substance: RANIBIZUMAB
     Route: 050

REACTIONS (3)
  - Retinal haemorrhage [Not Recovered/Not Resolved]
  - Visual acuity reduced [Not Recovered/Not Resolved]
  - Metamorphopsia [Not Recovered/Not Resolved]

NARRATIVE: CASE EVENT DATE: 20240106
